FAERS Safety Report 6402518-9 (Version None)
Quarter: 2009Q4

REPORT INFORMATION
  Report Type: 
  Country: None (occurrence: None)
  Receive Date: 20091009
  Receipt Date: 20090930
  Transmission Date: 20100525
  Serious: Yes (Other)
  Sender: FDA-Public Use
  Company Number: ADR34422009

PATIENT
  Age: 80 Year
  Sex: Male

DRUGS (5)
  1. CIPROFLOXACIN [Suspect]
     Indication: INFECTION
  2. LINEZOLID [Concomitant]
  3. MEROPENEM [Concomitant]
  4. PRISTINAMYCIN [Concomitant]
  5. VANCOMYCIN [Concomitant]

REACTIONS (2)
  - MULTIPLE-DRUG RESISTANCE [None]
  - TREATMENT FAILURE [None]
